FAERS Safety Report 16387832 (Version 1)
Quarter: 2019Q2

REPORT INFORMATION
  Report Type: Spontaneous
  Country: US (occurrence: US)
  Receive Date: 20190604
  Receipt Date: 20190604
  Transmission Date: 20190711
  Serious: No
  Sender: FDA-Public Use
  Company Number: US-AMGEN-USASP2019085561

PATIENT
  Age: 52 Year
  Sex: Male

DRUGS (5)
  1. VASCEPA [Concomitant]
     Active Substance: ICOSAPENT ETHYL
  2. ZETIA [Concomitant]
     Active Substance: EZETIMIBE
  3. REPATHA [Suspect]
     Active Substance: EVOLOCUMAB
     Indication: HYPERLIPIDAEMIA
     Dosage: UNK
     Route: 065
  4. NIACIN. [Concomitant]
     Active Substance: NIACIN
  5. FENOFIBRATE. [Concomitant]
     Active Substance: FENOFIBRATE

REACTIONS (1)
  - Blood triglycerides increased [Unknown]
